FAERS Safety Report 15407309 (Version 1)
Quarter: 2018Q3

REPORT INFORMATION
  Report Type: Spontaneous
  Country: US (occurrence: US)
  Receive Date: 20180920
  Receipt Date: 20180920
  Transmission Date: 20181010
  Serious: Yes (Other)
  Sender: FDA-Public Use
  Company Number: US-NOVOPROD-621691

PATIENT
  Age: 72 Year
  Sex: Female
  Weight: 132.88 kg

DRUGS (2)
  1. NOVOLOG MIX 70/30 [Suspect]
     Active Substance: INSULIN ASPART
     Dosage: 35 UNITS IN THE MORNING AND 40 UNITS AT NIGHT
     Route: 058
     Dates: end: 201807
  2. NOVOLOG MIX 70/30 [Suspect]
     Active Substance: INSULIN ASPART
     Indication: TYPE 2 DIABETES MELLITUS
     Dosage: 45 U, BID
     Route: 058

REACTIONS (3)
  - Weight decreased [Unknown]
  - Blood glucose increased [Recovered/Resolved]
  - Gastrectomy [Not Recovered/Not Resolved]

NARRATIVE: CASE EVENT DATE: 20180703
